FAERS Safety Report 14988465 (Version 10)
Quarter: 2019Q3

REPORT INFORMATION
  Report Type: Report from Study
  Country: US (occurrence: US)
  Receive Date: 20180608
  Receipt Date: 20190821
  Transmission Date: 20191004
  Serious: Yes (Hospitalization, Other)
  Sender: FDA-Public Use
  Company Number: US-JAZZ-2018-US-009199

PATIENT
  Sex: Female

DRUGS (3)
  1. XYREM [Suspect]
     Active Substance: SODIUM OXYBATE
     Indication: NARCOLEPSY
     Dosage: 2.25 G, BID
     Route: 048
     Dates: start: 201110, end: 201201
  2. NIACIN. [Suspect]
     Active Substance: NIACIN
     Indication: PRODUCT USED FOR UNKNOWN INDICATION
  3. XYREM [Suspect]
     Active Substance: SODIUM OXYBATE
     Indication: CATAPLEXY

REACTIONS (15)
  - Blood pressure increased [Recovered/Resolved]
  - Chronic obstructive pulmonary disease [Recovering/Resolving]
  - Elbow operation [Recovered/Resolved]
  - Gait disturbance [Unknown]
  - Pruritus [Unknown]
  - Weight decreased [Unknown]
  - Asthma [Recovering/Resolving]
  - Shoulder arthroplasty [Recovered/Resolved]
  - Nervousness [Not Recovered/Not Resolved]
  - Pre-existing condition improved [Unknown]
  - Sciatica [Recovering/Resolving]
  - Cerebrovascular accident [Unknown]
  - Lung disorder [Recovering/Resolving]
  - Blood cholesterol increased [Unknown]
  - Memory impairment [Not Recovered/Not Resolved]

NARRATIVE: CASE EVENT DATE: 2012
